FAERS Safety Report 5319807-1 (Version None)
Quarter: 2007Q2

REPORT INFORMATION
  Report Type: 
  Country: None (occurrence: None)
  Receive Date: 20070509
  Receipt Date: 20070504
  Transmission Date: 20071010
  Serious: Yes (Other)
  Sender: FDA-Public Use
  Company Number: US-RB-006102-07

PATIENT
  Age: 37 Year
  Sex: Male

DRUGS (3)
  1. SUBOXONE [Suspect]
     Dosage: 2ND LOT NUMBER: 603901; 2ND EXPIRATION DATE: 01-JUL-2007
     Route: 060
     Dates: start: 20070419, end: 20070423
  2. SEPTRA [Concomitant]
     Indication: DRUG USE FOR UNKNOWN INDICATION
     Dosage: DOSAGE AND DURATION OF TREATMENT UNKNOWN.
     Route: 065
  3. PAXIL [Concomitant]
     Indication: DRUG USE FOR UNKNOWN INDICATION
     Dosage: DOSAGE AND DURATION OF TREATMENT UNKNOWN.
     Route: 065

REACTIONS (1)
  - URINARY RETENTION [None]
